FAERS Safety Report 6225723-3 (Version None)
Quarter: 2009Q2

REPORT INFORMATION
  Report Type: 
  Country: None (occurrence: None)
  Receive Date: 20090612
  Receipt Date: 20090507
  Transmission Date: 20091009
  Serious: No
  Sender: FDA-Public Use
  Company Number: US-ABBOTT-09P-163-0571032-00

PATIENT
  Sex: Female
  Weight: 41.768 kg

DRUGS (5)
  1. HUMIRA [Suspect]
     Indication: CROHN'S DISEASE
     Route: 058
     Dates: start: 20090319, end: 20090320
  2. HUMIRA [Suspect]
     Route: 058
     Dates: start: 20090403
  3. HUMIRA [Suspect]
     Route: 058
     Dates: start: 20090403, end: 20090403
  4. PREDNISONE [Suspect]
     Indication: CROHN'S DISEASE
     Route: 048
  5. PREDNISONE [Suspect]
     Route: 048

REACTIONS (1)
  - DIARRHOEA [None]
